FAERS Safety Report 4365161-1 (Version None)
Quarter: 2004Q2

REPORT INFORMATION
  Report Type: 
  Country: None (occurrence: None)
  Receive Date: 20040525
  Receipt Date: 20040226
  Transmission Date: 20050107
  Serious: No
  Sender: FDA-Public Use
  Company Number: PHEH2004US02425

PATIENT
  Age: 56 Year
  Sex: Female

DRUGS (1)
  1. ZELNORM [Suspect]
     Indication: IRRITABLE BOWEL SYNDROME
     Dosage: ONCE, SINGLE
     Dates: start: 20040225, end: 20040225

REACTIONS (2)
  - MYALGIA [None]
  - TENSION HEADACHE [None]
